FAERS Safety Report 7359819-X (Version None)
Quarter: 2011Q1

REPORT INFORMATION
  Report Type: 
  Country: None (occurrence: None)
  Receive Date: 20110307
  Receipt Date: 20110209
  Transmission Date: 20110831
  Serious: Yes (Hospitalization)
  Sender: FDA-Public Use
  Company Number: 2011030009

PATIENT
  Age: 17 Year
  Sex: Male

DRUGS (7)
  1. TALOXA (FELBAMATE) [Suspect]
     Indication: EPILEPSY
     Dosage: 600 MG (200 MG, 3 IN 1 D), ORAL; 1200 MG (400 MG, 3 IN 1 D), ORAL
     Route: 048
     Dates: start: 20110131, end: 20110208
  2. TALOXA (FELBAMATE) [Suspect]
     Indication: EPILEPSY
     Dosage: 600 MG (200 MG, 3 IN 1 D), ORAL; 1200 MG (400 MG, 3 IN 1 D), ORAL
     Route: 048
     Dates: start: 20110124, end: 20110130
  3. KEPPRA (LEVEITIRACETAM) [Concomitant]
  4. PHENYTOIN [Concomitant]
  5. INOVELON (RUFINAMIDE) [Concomitant]
  6. FRISIUM (CLOBAZAM) [Concomitant]
  7. VIGANTOLETTEN (COLECALCIFEROL) [Concomitant]

REACTIONS (9)
  - PNEUMONIA INFLUENZAL [None]
  - PROTHROMBIN TIME SHORTENED [None]
  - ANTICONVULSANT DRUG LEVEL ABOVE THERAPEUTIC [None]
  - ASPARTATE AMINOTRANSFERASE INCREASED [None]
  - ACTIVATED PARTIAL THROMBOPLASTIN TIME PROLONGED [None]
  - H1N1 INFLUENZA [None]
  - BLOOD GLUCOSE INCREASED [None]
  - LABORATORY TEST ABNORMAL [None]
  - GAMMA-GLUTAMYLTRANSFERASE INCREASED [None]
